FAERS Safety Report 7352297-6 (Version None)
Quarter: 2011Q1

REPORT INFORMATION
  Report Type: 
  Country: None (occurrence: None)
  Receive Date: 20110315
  Receipt Date: 20110304
  Transmission Date: 20110831
  Serious: Yes (Other)
  Sender: FDA-Public Use
  Company Number: GB-AMGEN-GBRSP2011013450

PATIENT
  Age: 62 Year
  Sex: Female
  Weight: 50 kg

DRUGS (4)
  1. LEFLUNOMIDE [Concomitant]
     Indication: RHEUMATOID ARTHRITIS
     Dosage: 10 MG, 1X/DAY
     Route: 048
     Dates: start: 20100929, end: 20101103
  2. ENBREL [Suspect]
     Indication: RHEUMATOID ARTHRITIS
     Dosage: 50 MG, UNK
     Route: 058
     Dates: start: 20101230, end: 20110125
  3. CALCICHEW-D3 [Concomitant]
     Indication: BONE DISORDER
     Dosage: 1 DF, 2X/DAY
     Route: 048
  4. CO-DYDRAMOL [Concomitant]
     Indication: PAIN
     Dosage: 1 DF, 4X/DAY
     Route: 048

REACTIONS (4)
  - INJECTION SITE ERYTHEMA [None]
  - PRURITUS [None]
  - FORMICATION [None]
  - NEUTROPENIA [None]
